FAERS Safety Report 9557018 (Version 1)
Quarter: 2013Q3

REPORT INFORMATION
  Report Type: Spontaneous
  Country: US (occurrence: US)
  Receive Date: 20130926
  Receipt Date: 20130926
  Transmission Date: 20140515
  Serious: No
  Sender: FDA-Public Use
  Company Number: US-TARO-2012P1064076

PATIENT
  Age: 14 Year
  Sex: Female
  Weight: 56.7 kg

DRUGS (1)
  1. MALATHION LOTION USP 0.5% [Suspect]
     Indication: LICE INFESTATION
     Route: 061
     Dates: start: 20121013, end: 20121013

REACTIONS (2)
  - Application site irritation [Unknown]
  - Application site pruritus [Not Recovered/Not Resolved]
